FAERS Safety Report 7937301-6 (Version None)
Quarter: 2011Q4

REPORT INFORMATION
  Report Type: 
  Country: None (occurrence: None)
  Receive Date: 20111123
  Receipt Date: 20111114
  Transmission Date: 20120403
  Serious: Yes (Hospitalization)
  Sender: FDA-Public Use
  Company Number: ES-ABBOTT-11P-144-0874013-04

PATIENT
  Age: 36 Year
  Sex: Female
  Weight: 69 kg

DRUGS (9)
  1. HUMIRA [Suspect]
     Indication: CROHN'S DISEASE
     Dosage: BASELINE
     Route: 058
     Dates: start: 20090129, end: 20090129
  2. CORTICOSTEROIDS [Concomitant]
     Indication: CROHN'S DISEASE
  3. CIPROFLOXACINO [Concomitant]
     Indication: PYREXIA
     Route: 042
     Dates: start: 20090514, end: 20090518
  4. METRONIDAZOLE [Concomitant]
     Indication: PYREXIA
     Route: 042
     Dates: start: 20090514, end: 20090518
  5. CALCIUM WITH VITAMIN D [Concomitant]
     Indication: MINERAL SUPPLEMENTATION
     Dates: start: 20090521, end: 20090726
  6. HUMIRA [Suspect]
     Route: 058
  7. HUMIRA [Suspect]
     Dosage: BASELINE
     Route: 058
  8. HUMIRA [Suspect]
     Route: 058
     Dates: start: 20090318, end: 20091111
  9. COMMERCIAL HUMIRA [Concomitant]
     Indication: CROHN'S DISEASE
     Route: 058
     Dates: start: 20081001, end: 20090129

REACTIONS (1)
  - CROHN'S DISEASE [None]
